FAERS Safety Report 14945071 (Version 1)
Quarter: 2018Q2

REPORT INFORMATION
  Report Type: Spontaneous
  Country: DE (occurrence: DE)
  Receive Date: 20180529
  Receipt Date: 20180529
  Transmission Date: 20180711
  Serious: Yes (Hospitalization)
  Sender: FDA-Public Use
  Company Number: DE-WEST-WARD PHARMACEUTICALS CORP.-DE-H14001-18-04373

PATIENT
  Age: 48 Year
  Sex: Female
  Weight: 45 kg

DRUGS (8)
  1. KREON [Concomitant]
     Active Substance: PANCRELIPASE
     Indication: PANCREATIC FAILURE
     Dosage: DAILY DOSE: 120 IU INTERNATIONAL UNIT(S) EVERY DAYS
     Route: 048
  2. BISOPROLOL [Concomitant]
     Active Substance: BISOPROLOL
     Indication: HYPERTENSION
     Dosage: DAILY DOSE: 2.5 MG MILLGRAM(S) EVERY DAYS
     Route: 048
  3. NOVAMINSULFON [Concomitant]
     Active Substance: METAMIZOLE
     Indication: PAIN
     Dosage: B. B. 3X 20 TR.
     Route: 048
  4. THIAMAZOL [Concomitant]
     Active Substance: METHIMAZOLE
     Indication: HYPERTHYROIDISM
     Dosage: DAILY DOSE: 5 MG MILLGRAM(S) EVERY DAYS
     Route: 048
  5. DEKRISTOL [Concomitant]
     Active Substance: CHOLECALCIFEROL
     Indication: VITAMIN D DEFICIENCY
     Route: 048
  6. FORTIMEL [Concomitant]
     Active Substance: DIETARY SUPPLEMENT
     Indication: UNDERWEIGHT
     Dosage: BIS 3X1 PCK. ()
     Route: 048
  7. CEFUROXIM [Suspect]
     Active Substance: CEFUROXIME
     Indication: BRONCHITIS
     Dosage: DAILY DOSE: 500 MG MILLGRAM(S) EVERY DAYS
     Dates: start: 201603, end: 201603
  8. PANTOPRAZOL [Concomitant]
     Active Substance: PANTOPRAZOLE SODIUM
     Indication: GASTRITIS
     Dosage: DAILY DOSE: 20 MG MILLGRAM(S) EVERY DAYS
     Route: 048

REACTIONS (1)
  - Pancreatitis [Recovered/Resolved]

NARRATIVE: CASE EVENT DATE: 20160315
